FAERS Safety Report 11135471 (Version 1)
Quarter: 2015Q2

REPORT INFORMATION
  Report Type: Spontaneous
  Country: US (occurrence: None)
  Receive Date: 20150521
  Receipt Date: 20150521
  Transmission Date: 20150821
  Serious: Yes (Hospitalization)
  Sender: FDA-Public Use
  Company Number: FK201502330

PATIENT
  Age: 39 Year
  Sex: Male
  Weight: 130 kg

DRUGS (2)
  1. VALPROATE [Suspect]
     Active Substance: VALPROATE SODIUM
     Indication: BIPOLAR DISORDER
  2. QUETIAPINE [Suspect]
     Active Substance: QUETIAPINE
     Indication: BIPOLAR DISORDER

REACTIONS (6)
  - Acidosis [None]
  - Hyperglycaemia [None]
  - Off label use [None]
  - Hyperlipidaemia [None]
  - Drug interaction [None]
  - Metabolic syndrome [None]
